FAERS Safety Report 14159454 (Version 3)
Quarter: 2017Q4

REPORT INFORMATION
  Report Type: Report from Study
  Country: BR (occurrence: BR)
  Receive Date: 20171103
  Receipt Date: 20171117
  Transmission Date: 20180321
  Serious: Yes (Other)
  Sender: FDA-Public Use
  Company Number: PHHY2017BR160615

PATIENT
  Sex: Female
  Weight: 82 kg

DRUGS (1)
  1. DUOTRAVATAN [BAC] [Suspect]
     Active Substance: TIMOLOL MALEATE\TRAVOPROST
     Indication: GLAUCOMA
     Dosage: 2 DRP, QD (1 DROP IN THE MORNING AND 1 DROP IN THE NIGHT)
     Route: 047

REACTIONS (6)
  - Cataract [Unknown]
  - Condition aggravated [Not Recovered/Not Resolved]
  - Visual impairment [Recovering/Resolving]
  - Emotional distress [Unknown]
  - Glaucoma [Not Recovered/Not Resolved]
  - Ocular discomfort [Unknown]
